FAERS Safety Report 24454198 (Version 2)
Quarter: 2024Q4

REPORT INFORMATION
  Report Type: Report from Study
  Country: US (occurrence: US)
  Receive Date: 20241017
  Receipt Date: 20241018
  Transmission Date: 20250114
  Serious: No
  Sender: ROCHE
  Company Number: US-ROCHE-3470375

PATIENT
  Age: 59 Year
  Sex: Male
  Weight: 87.4 kg

DRUGS (18)
  1. RITUXAN [Suspect]
     Active Substance: RITUXIMAB
     Indication: Immune system disorder
     Dosage: 2 MG/ML?INFUSE IV WEEKLY 4 DOSES.
     Route: 041
  2. RITUXAN [Suspect]
     Active Substance: RITUXIMAB
     Indication: Rheumatoid arthritis
  3. RITUXAN [Suspect]
     Active Substance: RITUXIMAB
     Indication: Chronic inflammatory demyelinating polyradiculoneuropathy
  4. METHOTREXATE [Concomitant]
     Active Substance: METHOTREXATE
  5. PREDNISONE [Concomitant]
     Active Substance: PREDNISONE
  6. PLAQUENIL [Concomitant]
     Active Substance: HYDROXYCHLOROQUINE SULFATE
  7. HUMIRA [Concomitant]
     Active Substance: ADALIMUMAB
  8. XANAX [Concomitant]
     Active Substance: ALPRAZOLAM
     Indication: Anxiety
     Dosage: 0.5 MG TABLET BY MOUTH AT NIGHT IF NEEDED
  9. SOMA [Concomitant]
     Active Substance: CARISOPRODOL
     Dosage: 350 MG TABLET BY MOUTH THREE TIMES IN A DAY IF NEEDED
  10. DIPHENHYDRAMINE [Concomitant]
     Active Substance: DIPHENHYDRAMINE
     Dosage: 25 MG TABLET BY MOUTH IF NEEDED FOR SLEEP
  11. CYMBALTA [Concomitant]
     Active Substance: DULOXETINE HYDROCHLORIDE
  12. CORTEF [Concomitant]
     Active Substance: HYDROCORTISONE
     Dosage: 5 MG TABLET
  13. NALTREXONE [Concomitant]
     Active Substance: NALTREXONE
     Dosage: 50 MG TABLET 5 MG BY MOUTH ONE TIME EACH DAY
  14. LYRICA [Concomitant]
     Active Substance: PREGABALIN
     Dosage: 300 MG CAPSULE
  15. VIAGRA [Concomitant]
     Active Substance: SILDENAFIL CITRATE
     Dosage: 100 MG TABLET BY MOTH ONE TIME IN A DAY IF NEEDED
  16. DESYREL [Concomitant]
     Active Substance: TRAZODONE HYDROCHLORIDE
     Dosage: 100 MG TABLET EVERY NIGHT
  17. UROXATRAL [Concomitant]
     Active Substance: ALFUZOSIN HYDROCHLORIDE
     Dosage: 10 MG TABLET, BY MOUT DAILY
  18. TESTOSTERONE [Concomitant]
     Active Substance: TESTOSTERONE
     Dosage: 20 % CREAM

REACTIONS (3)
  - Off label use [Unknown]
  - Off label use [Unknown]
  - No adverse event [Unknown]
